FAERS Safety Report 5536595-4 (Version None)
Quarter: 2007Q4

REPORT INFORMATION
  Report Type: 
  Country: None (occurrence: None)
  Receive Date: 20071204
  Receipt Date: 20071127
  Transmission Date: 20080405
  Serious: Yes (Hospitalization)
  Sender: FDA-Public Use
  Company Number: 028-C5013-07051022

PATIENT
  Age: 76 Year
  Sex: Female

DRUGS (7)
  1. CC-5013 (LENALIDOMIDE) (CAPSULES) [Suspect]
     Indication: MULTIPLE MYELOMA
     Dosage: 15 MG, DAILY X 21 DAYS; ORAL, 10 MG, DAILY X 21 DAYS; ORAL
     Route: 048
     Dates: start: 20061030, end: 20061230
  2. DEXAMETHASONE TAB [Suspect]
     Indication: DRUG USE FOR UNKNOWN INDICATION
     Dosage: PULSE;
     Dates: start: 20061030
  3. ASPIRIN [Concomitant]
  4. RABEPRAZOLE SODIUM [Concomitant]
  5. AVAPRO [Concomitant]
  6. HYDROCHLOROTHIAZIDE [Concomitant]
  7. LOVASTATIN [Concomitant]

REACTIONS (3)
  - NEUTROPENIA [None]
  - PNEUMONIA [None]
  - RENAL FAILURE [None]
